FAERS Safety Report 24430085 (Version 2)
Quarter: 2025Q3

REPORT INFORMATION
  Report Type: Spontaneous
  Country: US (occurrence: US)
  Receive Date: 20241013
  Receipt Date: 20250810
  Transmission Date: 20251020
  Serious: No
  Sender: ALEXION PHARMACEUTICALS
  Company Number: US-AstraZeneca-CH-00716833A

PATIENT

DRUGS (1)
  1. SAPHNELO [Suspect]
     Active Substance: ANIFROLUMAB-FNIA

REACTIONS (5)
  - Paraesthesia [Unknown]
  - Hypoaesthesia [Unknown]
  - Dizziness [Unknown]
  - Chills [Unknown]
  - Headache [Unknown]
